FAERS Safety Report 5980096-6 (Version None)
Quarter: 2008Q4

REPORT INFORMATION
  Report Type: 
  Country: None (occurrence: None)
  Receive Date: 20081205
  Receipt Date: 20081126
  Transmission Date: 20090506
  Serious: Yes (Hospitalization)
  Sender: FDA-Public Use
  Company Number: CA-AVENTIS-200815388EU

PATIENT
  Age: 64 Year
  Sex: Male
  Weight: 130 kg

DRUGS (17)
  1. LASIX [Suspect]
     Indication: HYPERTENSION
     Dates: start: 19990101, end: 20080711
  2. ALTACE [Suspect]
     Indication: HYPERTENSION
     Dates: start: 20060101, end: 20080711
  3. AVAPRO [Suspect]
     Indication: HYPERTENSION
     Dates: start: 20060101, end: 20080711
  4. ASPIRIN [Concomitant]
     Indication: THROMBOSIS PROPHYLAXIS
     Route: 048
     Dates: start: 19980101
  5. PLAVIX [Concomitant]
     Indication: THROMBOSIS PROPHYLAXIS
     Route: 048
     Dates: start: 19991101
  6. LIPITOR [Concomitant]
     Indication: LIPIDS INCREASED
     Route: 048
     Dates: start: 19991101
  7. LIPIDIL [Concomitant]
     Indication: LIPIDS INCREASED
     Route: 048
     Dates: start: 20001201
  8. LISINOPRIL [Concomitant]
     Route: 048
  9. HUMULIN N [Concomitant]
     Dosage: DOSE: 60U BREAKFEAST, 70U DINNER
     Route: 058
     Dates: start: 19950101
  10. HUMALOG [Concomitant]
     Dosage: DOSE: 33U BREAKFAST, 33U LUNCH, 58U DINNER
     Route: 058
     Dates: start: 19950101
  11. ZOLOFT [Concomitant]
     Indication: INSOMNIA
     Route: 048
     Dates: start: 20040101
  12. TRUSOPT [Concomitant]
     Route: 047
     Dates: start: 19990101
  13. TIMOLOL [Concomitant]
     Route: 047
     Dates: start: 19990101
  14. ALPHAGAN                           /01341102/ [Concomitant]
     Indication: GLAUCOMA
     Route: 047
     Dates: start: 19990101
  15. CODE UNBROKEN [Concomitant]
     Indication: CARDIOVASCULAR DISORDER
     Route: 048
     Dates: start: 20061218, end: 20080711
  16. CHLORTHALIDONE [Concomitant]
  17. METOPROLOL TARTRATE [Concomitant]
     Indication: PROPHYLAXIS
     Dates: start: 19980601

REACTIONS (5)
  - CHRONIC OBSTRUCTIVE PULMONARY DISEASE [None]
  - DECREASED APPETITE [None]
  - DEHYDRATION [None]
  - RENAL FAILURE ACUTE [None]
  - WEIGHT DECREASED [None]
